FAERS Safety Report 5619584-0 (Version None)
Quarter: 2008Q1

REPORT INFORMATION
  Report Type: 
  Country: None (occurrence: None)
  Receive Date: 20080208
  Receipt Date: 20080201
  Transmission Date: 20080703
  Serious: Yes (Other)
  Sender: FDA-Public Use
  Company Number: US-BAYER-200812886NA

PATIENT
  Age: 48 Year
  Sex: Female

DRUGS (2)
  1. YAZ [Suspect]
     Indication: CONTRACEPTION
     Route: 048
     Dates: start: 20070901
  2. MULTIVITAMIN WITH VITAMIN C, B, FISH OIL, AND CALCIUM [Concomitant]

REACTIONS (2)
  - GALLBLADDER OPERATION [None]
  - VAGINAL DISCHARGE [None]
